FAERS Safety Report 17776119 (Version 1)
Quarter: 2020Q2

REPORT INFORMATION
  Report Type: Spontaneous
  Country: US (occurrence: US)
  Receive Date: 20200513
  Receipt Date: 20200513
  Transmission Date: 20200714
  Serious: No
  Sender: FDA-Public Use
  Company Number: None

PATIENT
  Sex: Female

DRUGS (17)
  1. TRAMADOL 50MG [Concomitant]
     Active Substance: TRAMADOL
     Dates: start: 20170712
  2. ALLOPURINOL 100MG [Concomitant]
     Active Substance: ALLOPURINOL
  3. AMLODIPINE BESYLATE 5MG [Concomitant]
     Active Substance: AMLODIPINE BESYLATE
     Dates: start: 20170712
  4. LOVASTATIN 10MG [Concomitant]
     Dates: start: 20170712
  5. HYDRALAZINE 25MG [Concomitant]
     Active Substance: HYDRALAZINE HYDROCHLORIDE
     Dates: start: 20200303
  6. SENSIPAR [Concomitant]
     Active Substance: CINACALCET HYDROCHLORIDE
     Dates: start: 20170712
  7. LOSARTAN 25MG [Concomitant]
     Active Substance: LOSARTAN
     Dates: start: 20170712
  8. PEPCID 20MG [Concomitant]
     Dates: start: 20171114
  9. DOCUSATE SODIUM 100MG [Concomitant]
     Active Substance: DOCUSATE SODIUM
     Dates: start: 20200409
  10. DULOXETINE DR 30MG [Concomitant]
     Active Substance: DULOXETINE
     Dates: start: 20170712
  11. QUESTRAN [Concomitant]
     Active Substance: CHOLESTYRAMINE
     Dates: start: 20200303
  12. FUROSEMIDE 20MG [Concomitant]
     Active Substance: FUROSEMIDE
     Dates: start: 20200303
  13. KEYTRUDA 100MG [Concomitant]
     Dates: start: 20200303
  14. CABOMETYX [Suspect]
     Active Substance: CABOZANTINIB S-MALATE
     Indication: RENAL CANCER
     Route: 048
     Dates: start: 20200310
  15. ONDANSETRON 8MG [Concomitant]
     Active Substance: ONDANSETRON
     Dates: start: 20170712
  16. CALCITRIOL 0.5MG [Concomitant]
     Dates: start: 20200303
  17. DEXAMETHASONE 4MG [Concomitant]
     Active Substance: DEXAMETHASONE
     Dates: start: 20200303

REACTIONS (3)
  - Constipation [None]
  - Fatigue [None]
  - Nausea [None]
